FAERS Safety Report 5201229-5 (Version None)
Quarter: 2007Q1

REPORT INFORMATION
  Report Type: 
  Country: None (occurrence: None)
  Receive Date: 20070103
  Receipt Date: 20061215
  Transmission Date: 20070707
  Serious: Yes (Hospitalization)
  Sender: FDA-Public Use
  Company Number: 15380

PATIENT
  Age: 56 Year
  Sex: Male

DRUGS (10)
  1. AMIODARONE HCL [Suspect]
     Indication: SUPRAVENTRICULAR TACHYCARDIA
     Dosage: 1.2 G ONCE IV
     Route: 042
  2. AMIODARONE HCL [Suspect]
     Indication: SUPRAVENTRICULAR TACHYCARDIA
  3. ADENOSINE [Suspect]
     Indication: SUPRAVENTRICULAR TACHYCARDIA
  4. CLARITHROMYCIN [Suspect]
     Indication: LOWER RESPIRATORY TRACT INFECTION
     Dosage: 1 G ONCE PO
     Route: 048
  5. SIMVASTATIN [Suspect]
     Indication: MYOCARDIAL ISCHAEMIA
     Dosage: 40 MG ONCE PO
     Route: 048
  6. AMLODIPINE [Concomitant]
  7. ASPIRIN [Concomitant]
  8. CEFTRIAXONE [Concomitant]
  9. FERROUS SULFATE TAB [Concomitant]
  10. LANSOPRAZOLE [Concomitant]

REACTIONS (7)
  - ASTHENIA [None]
  - DRUG INTERACTION [None]
  - LIVER FUNCTION TEST ABNORMAL [None]
  - MYOSITIS [None]
  - PERICARDIAL EFFUSION [None]
  - PLEURAL EFFUSION [None]
  - PULMONARY EMBOLISM [None]
